FAERS Safety Report 6058745-6 (Version None)
Quarter: 2009Q1

REPORT INFORMATION
  Report Type: 
  Country: None (occurrence: None)
  Receive Date: 20090130
  Receipt Date: 20090122
  Transmission Date: 20090719
  Serious: Yes (Other)
  Sender: FDA-Public Use
  Company Number: FR-PFIZER INC-2009160467

PATIENT

DRUGS (10)
  1. CAMPTOSAR [Suspect]
     Indication: GASTRIC CANCER
     Dosage: UNK
     Route: 042
  2. SECTRAL [Concomitant]
     Dosage: 200 MG, 1X/DAY
  3. INIPOMP [Concomitant]
     Dosage: 40 MG
  4. NEXIUM [Concomitant]
     Dosage: 40 MG
  5. ULTRACET [Concomitant]
  6. PERINDOPRIL [Concomitant]
     Dosage: 2 MG, 1X/DAY
  7. FLUOROURACIL [Concomitant]
  8. METHYLPREDNISOLONE [Concomitant]
     Indication: PREMEDICATION
  9. ONDANSETRON HYDROCHLORIDE [Concomitant]
     Indication: PREMEDICATION
  10. FOLINIC ACID [Concomitant]

REACTIONS (1)
  - TETANY [None]
